FAERS Safety Report 6636223-0 (Version None)
Quarter: 2010Q1

REPORT INFORMATION
  Report Type: 
  Country: None (occurrence: None)
  Receive Date: 20100316
  Receipt Date: 20100304
  Transmission Date: 20100710
  Serious: Yes (Death)
  Sender: FDA-Public Use
  Company Number: JP-PFIZER INC-2010029982

PATIENT
  Age: 54 Year
  Sex: Female
  Weight: 65 kg

DRUGS (2)
  1. FARMORUBICIN [Suspect]
     Indication: BREAST CANCER RECURRENT
     Dosage: 60 MG/M2, (90 MG), ONCE
     Route: 042
  2. CYCLOPHOSPHAMIDE [Concomitant]
     Route: 042

REACTIONS (1)
  - DEATH [None]
